FAERS Safety Report 13055568 (Version 3)
Quarter: 2017Q1

REPORT INFORMATION
  Report Type: Spontaneous
  Country: DE (occurrence: DE)
  Receive Date: 20161222
  Receipt Date: 20170111
  Transmission Date: 20170428
  Serious: Yes (Hospitalization, Other)
  Sender: FDA-Public Use
  Company Number: DE-GILEAD-2016-0249942

PATIENT
  Age: 74 Year
  Sex: Female

DRUGS (11)
  1. BISOPROLOL [Concomitant]
     Active Substance: BISOPROLOL
     Dosage: 1.25 MG, QD
  2. LISINOPRIL. [Concomitant]
     Active Substance: LISINOPRIL
     Dosage: 5 MG, UNK
  3. RANOLAZINE [Suspect]
     Active Substance: RANOLAZINE
     Indication: ANGINA PECTORIS
     Dosage: 500 MG, QD
     Route: 048
     Dates: start: 20160403, end: 20160406
  4. RANOLAZINE [Suspect]
     Active Substance: RANOLAZINE
     Dosage: 375 MG, QD
     Route: 048
     Dates: start: 20160226, end: 20160402
  5. CRESTOR [Concomitant]
     Active Substance: ROSUVASTATIN CALCIUM
     Dosage: 5 MG, QD
  6. PROTAPHANE [Concomitant]
     Active Substance: INSULIN HUMAN
     Indication: TYPE 1 DIABETES MELLITUS
     Dosage: 4.5 IU- 5IU- 0IU (OR LESS, ACCORDING TO DAILY EXERCISE)
  7. NOVORAPID [Concomitant]
     Active Substance: INSULIN ASPART
     Indication: TYPE 1 DIABETES MELLITUS
     Dosage: 2 IU PER BREAD UNITS (WITH MEALS, DOSE ACCORDING TO TEST RESULTS)
  8. BISOPROLOL [Concomitant]
     Active Substance: BISOPROLOL
  9. ASPIRIN. [Concomitant]
     Active Substance: ASPIRIN
     Dosage: 100 MG, QD
  10. LEVEMIR [Concomitant]
     Active Substance: INSULIN DETEMIR
     Indication: TYPE 1 DIABETES MELLITUS
     Dosage: 0IU 0IU- 3.5IU
  11. INSULIN ASPART [Concomitant]
     Active Substance: INSULIN ASPART
     Indication: TYPE 1 DIABETES MELLITUS

REACTIONS (6)
  - Hypoglycaemia [Recovered/Resolved]
  - Road traffic accident [Recovered/Resolved]
  - Rib fracture [Unknown]
  - Loss of consciousness [Recovered/Resolved]
  - Off label use [Recovered/Resolved]
  - Spinal fracture [Unknown]

NARRATIVE: CASE EVENT DATE: 20160406
